FAERS Safety Report 4556848-6 (Version None)
Quarter: 2005Q1

REPORT INFORMATION
  Report Type: 
  Country: None (occurrence: None)
  Receive Date: 20050118
  Receipt Date: 20050105
  Transmission Date: 20050727
  Serious: Yes (Other)
  Sender: FDA-Public Use
  Company Number: HQWYE195716JUL04

PATIENT
  Age: 49 Year
  Sex: Female
  Weight: 73.55 kg

DRUGS (1)
  1. PREMARIN [Suspect]
     Indication: OESTROGEN REPLACEMENT THERAPY
     Dosage: ^1.25^, ORAL
     Route: 048
     Dates: start: 19850101, end: 19910401

REACTIONS (5)
  - BREAST CANCER FEMALE [None]
  - BURNING SENSATION [None]
  - MYOCARDIAL INFARCTION [None]
  - NEOPLASM MALIGNANT [None]
  - PAIN [None]
